FAERS Safety Report 5541770-9 (Version None)
Quarter: 2007Q4

REPORT INFORMATION
  Report Type: 
  Country: None (occurrence: None)
  Receive Date: 20071210
  Receipt Date: 20071130
  Transmission Date: 20080405
  Serious: Yes (Other)
  Sender: FDA-Public Use
  Company Number: A0697982A

PATIENT
  Age: 33 Year
  Sex: Female

DRUGS (2)
  1. WELLBUTRIN [Suspect]
     Indication: DEPRESSION
     Route: 048
     Dates: end: 20070101
  2. ZYRTEC [Concomitant]

REACTIONS (3)
  - DELIVERY [None]
  - DEPRESSIVE SYMPTOM [None]
  - PREGNANCY INDUCED HYPERTENSION [None]
